FAERS Safety Report 17156448 (Version 1)
Quarter: 2019Q4

REPORT INFORMATION
  Report Type: Spontaneous
  Country: US (occurrence: US)
  Receive Date: 20191216
  Receipt Date: 20191216
  Transmission Date: 20200122
  Serious: No
  Sender: FDA-Public Use
  Company Number: US-APOTEX-2019AP025679

PATIENT

DRUGS (3)
  1. NALTREXONE [Suspect]
     Active Substance: NALTREXONE
     Indication: EATING DISORDER
  2. NALTREXONE [Suspect]
     Active Substance: NALTREXONE
     Indication: PURGING
  3. NALTREXONE [Suspect]
     Active Substance: NALTREXONE
     Indication: BINGE EATING
     Dosage: UNK
     Route: 065

REACTIONS (2)
  - Off label use [Unknown]
  - Dizziness [Unknown]
